FAERS Safety Report 5356835-4 (Version None)
Quarter: 2007Q2

REPORT INFORMATION
  Report Type: 
  Country: None (occurrence: None)
  Receive Date: 20070614
  Receipt Date: 20070302
  Transmission Date: 20071010
  Serious: No
  Sender: FDA-Public Use
  Company Number: US-ASTRAZENECA-2007UW04172

PATIENT
  Sex: Male
  Weight: 113.4 kg

DRUGS (3)
  1. ATACAND [Suspect]
     Indication: HYPERTENSION
     Route: 048
     Dates: start: 20070101
  2. GLYBURIDE [Concomitant]
  3. LASIX [Concomitant]

REACTIONS (2)
  - RASH [None]
  - WEIGHT INCREASED [None]
